APPROVED DRUG PRODUCT: BRIXADI
Active Ingredient: BUPRENORPHINE
Strength: 8MG/0.16ML (50MG/ML)
Dosage Form/Route: SOLUTION, EXTENDED RELEASE;SUBCUTANEOUS
Application: N210136 | Product #001
Applicant: BRAEBURN INC
Approved: May 23, 2023 | RLD: Yes | RS: No | Type: RX

PATENTS:
Patent 12318379 | Expires: Jul 26, 2032
Patent 12161640 | Expires: Jul 26, 2032
Patent 11110084 | Expires: Jul 26, 2032
Patent 10912772 | Expires: Jul 26, 2032
Patent 9937164 | Expires: Jul 26, 2032
Patent 8236755 | Expires: Jul 31, 2026
Patent 8236292 | Expires: Jan 10, 2027
Patent 11135215 | Expires: Jul 26, 2032

EXCLUSIVITY:
Code: NP | Date: May 23, 2026